FAERS Safety Report 23130219 (Version 1)
Quarter: 2023Q4

REPORT INFORMATION
  Report Type: Report from Study
  Country: US (occurrence: US)
  Receive Date: 20231031
  Receipt Date: 20231031
  Transmission Date: 20240109
  Serious: Yes (Other)
  Sender: FDA-Public Use
  Company Number: US-ABBVIE-5470474

PATIENT
  Sex: Female

DRUGS (1)
  1. RINVOQ [Suspect]
     Active Substance: UPADACITINIB
     Indication: Rheumatoid arthritis
     Route: 048
     Dates: start: 20210418

REACTIONS (3)
  - Dental implantation [Unknown]
  - COVID-19 [Recovering/Resolving]
  - Implantation complication [Recovering/Resolving]

NARRATIVE: CASE EVENT DATE: 20220101
